FAERS Safety Report 7199171-6 (Version None)
Quarter: 2010Q4

REPORT INFORMATION
  Report Type: 
  Country: None (occurrence: None)
  Receive Date: 20101215
  Receipt Date: 20101202
  Transmission Date: 20110411
  Serious: Yes (Other)
  Sender: FDA-Public Use
  Company Number: 023151

PATIENT
  Sex: Female

DRUGS (5)
  1. KEPPRA [Suspect]
     Indication: CONVULSION
     Dosage: (3000 MG QD, AT NIGHT ORAL)
     Route: 048
     Dates: start: 20100301
  2. KEPPRA [Suspect]
     Indication: CONVULSION
     Dosage: (1500 MG QD  ORAL), (3000 MG QD ORAL
     Route: 048
     Dates: start: 20080101, end: 20100101
  3. KEPPRA [Suspect]
     Indication: CONVULSION
     Dosage: (1500 MG QD  ORAL), (3000 MG QD ORAL
     Route: 048
     Dates: start: 20100301
  4. LAMICTAL [Concomitant]
  5. SONATA /01454001/ [Concomitant]

REACTIONS (2)
  - FATIGUE [None]
  - FEELING ABNORMAL [None]
